FAERS Safety Report 10194821 (Version 1)
Quarter: 2014Q2

REPORT INFORMATION
  Report Type: Spontaneous
  Country: NO (occurrence: NO)
  Receive Date: 20140526
  Receipt Date: 20140526
  Transmission Date: 20141212
  Serious: Yes (Other)
  Sender: FDA-Public Use
  Company Number: NO-PFIZER INC-2014140298

PATIENT
  Age: 7 Decade
  Sex: Male

DRUGS (5)
  1. ALPRAZOLAM [Suspect]
     Indication: INSOMNIA
     Dosage: 1/4 TABLET, PER DAY
  2. ALPRAZOLAM [Suspect]
     Dosage: 1/2 TABLET, PER DAY
  3. ALPRAZOLAM [Suspect]
     Dosage: 3/4 TABLET, PER DAY
  4. ALPRAZOLAM [Suspect]
     Dosage: 1 TABLET, PER DAY
  5. ALPRAZOLAM [Suspect]
     Dosage: 12 TABLETS, PER DAY

REACTIONS (1)
  - Glycogen storage disorder [Recovered/Resolved]
